FAERS Safety Report 8303594-9 (Version None)
Quarter: 2012Q2

REPORT INFORMATION
  Report Type: 
  Country: None (occurrence: None)
  Receive Date: 20120423
  Receipt Date: 20120416
  Transmission Date: 20120825
  Serious: Yes (Other)
  Sender: FDA-Public Use
  Company Number: US-BAYER-2012-019221

PATIENT
  Age: 63 Year
  Sex: Male
  Weight: 81.633 kg

DRUGS (10)
  1. GINKGO BILOBA [Concomitant]
     Indication: ERECTILE DYSFUNCTION
     Dosage: 120 MG, BID
     Dates: start: 20060101
  2. MULTI-VITAMIN [Concomitant]
     Dosage: UNK
     Dates: start: 19950101
  3. NEXIUM [Concomitant]
     Indication: GASTROOESOPHAGEAL REFLUX DISEASE
     Dosage: 1 DF, BID
     Dates: start: 19950101
  4. LEVITRA [Suspect]
     Indication: ERECTILE DYSFUNCTION
     Dosage: 10 MG, UNK
     Route: 048
     Dates: start: 20110801
  5. METOCLOPRAMIDE [Concomitant]
     Indication: GASTROOESOPHAGEAL REFLUX DISEASE
     Dosage: 10 MG, HS
     Dates: start: 20050101
  6. BENADRYL [Concomitant]
     Indication: INSOMNIA
     Dosage: 50 MG, HS
     Dates: start: 20000101
  7. MELATONIN [Concomitant]
     Indication: INSOMNIA
     Dosage: 10 MG, HS
     Dates: start: 20000101
  8. MAGNESIUM [Concomitant]
     Indication: MUSCLE SPASMS
     Dosage: 250 MG, BID
     Dates: start: 20050101
  9. L ARGININ HCL [Concomitant]
     Indication: ERECTILE DYSFUNCTION
     Dosage: 16M
     Route: 048
     Dates: start: 20060101
  10. GINSENG [Concomitant]
     Indication: ERECTILE DYSFUNCTION
     Dosage: 10 MG, BID
     Dates: start: 20060101

REACTIONS (4)
  - PAIN IN EXTREMITY [None]
  - JOINT SWELLING [None]
  - ARTHRALGIA [None]
  - MUSCULOSKELETAL STIFFNESS [None]
